FAERS Safety Report 10009524 (Version 1)
Quarter: 2014Q1

REPORT INFORMATION
  Report Type: Spontaneous
  Country: US (occurrence: US)
  Receive Date: 20140312
  Receipt Date: 20140312
  Transmission Date: 20141002
  Serious: No
  Sender: FDA-Public Use
  Company Number: US-INCYTE CORPORATION-2012IN001777

PATIENT
  Age: 74 Year
  Sex: Female

DRUGS (3)
  1. JAKAFI [Suspect]
     Indication: MYELOFIBROSIS
     Dosage: 15 MG, QD
     Route: 048
  2. CITALOPRAM [Concomitant]
     Dosage: 25 MG, QD
  3. THYROID SUPPLEMENT [Concomitant]

REACTIONS (1)
  - Pruritus [Not Recovered/Not Resolved]
